FAERS Safety Report 12398399 (Version 3)
Quarter: 2016Q2

REPORT INFORMATION
  Report Type: Report from Study
  Country: US (occurrence: US)
  Receive Date: 20160524
  Receipt Date: 20160627
  Transmission Date: 20160815
  Serious: Yes (Hospitalization)
  Sender: FDA-Public Use
  Company Number: US-BIOGEN-2013BI000279

PATIENT
  Age: 55 Year
  Sex: Female

DRUGS (1)
  1. AVONEX [Suspect]
     Active Substance: INTERFERON BETA-1A
     Indication: MULTIPLE SCLEROSIS
     Route: 030
     Dates: start: 19971101, end: 20160331

REACTIONS (10)
  - Pain [Not Recovered/Not Resolved]
  - Cerebrovascular accident [Recovered/Resolved]
  - Small intestinal obstruction [Recovered/Resolved]
  - Hypoaesthesia [Not Recovered/Not Resolved]
  - Pneumonia [Recovered/Resolved]
  - Diverticulitis [Recovered/Resolved]
  - Medical induction of coma [Recovered/Resolved]
  - Paraesthesia [Not Recovered/Not Resolved]
  - Pulmonary thrombosis [Recovered/Resolved]
  - Colonic abscess [Recovered/Resolved]

NARRATIVE: CASE EVENT DATE: 2000
